FAERS Safety Report 9917856 (Version 2)
Quarter: 2014Q1

REPORT INFORMATION
  Report Type: Spontaneous
  Country: US (occurrence: US)
  Receive Date: 20140221
  Receipt Date: 20140310
  Transmission Date: 20141002
  Serious: Yes (Hospitalization)
  Sender: FDA-Public Use
  Company Number: US-GLAXOSMITHKLINE-A1061975A

PATIENT
  Age: 67 Year
  Sex: Male

DRUGS (9)
  1. ADVAIR [Suspect]
     Indication: DYSPNOEA
     Dosage: 2PUFF TWICE PER DAY
     Route: 055
     Dates: start: 20101025
  2. COUMADIN [Concomitant]
  3. LISINOPRIL [Concomitant]
  4. NITROGLYCERIN [Concomitant]
  5. FUROSEMIDE [Concomitant]
  6. KLOR CON [Concomitant]
  7. CARVEDILOL [Concomitant]
  8. COREG [Concomitant]
  9. PREDNISONE [Concomitant]

REACTIONS (4)
  - Ill-defined disorder [Unknown]
  - Dyspnoea [Not Recovered/Not Resolved]
  - Drug ineffective [Not Recovered/Not Resolved]
  - Nasopharyngitis [Not Recovered/Not Resolved]
